FAERS Safety Report 21233661 (Version 1)
Quarter: 2022Q3

REPORT INFORMATION
  Report Type: Spontaneous
  Country: US (occurrence: None)
  Receive Date: 20220819
  Receipt Date: 20220819
  Transmission Date: 20221026
  Serious: Yes (Hospitalization)
  Sender: FDA-Public Use
  Company Number: None

PATIENT
  Sex: 0

DRUGS (15)
  1. IRON SUCROSE [Suspect]
     Active Substance: IRON SUCROSE
  2. IRON SUCROSE [Concomitant]
     Active Substance: IRON SUCROSE
     Dates: start: 20220222, end: 20220222
  3. IRON SUCROSE [Concomitant]
     Active Substance: IRON SUCROSE
     Dates: start: 20220324, end: 20220324
  4. IRON SUCROSE [Concomitant]
     Active Substance: IRON SUCROSE
  5. IRON SUCROSE [Concomitant]
     Active Substance: IRON SUCROSE
     Dates: start: 20220510, end: 20220510
  6. IRON SUCROSE [Concomitant]
     Active Substance: IRON SUCROSE
     Dates: start: 20220624, end: 20220624
  7. IRON SUCROSE [Concomitant]
     Active Substance: IRON SUCROSE
     Dates: start: 20220714, end: 20220714
  8. IRON SUCROSE [Concomitant]
     Active Substance: IRON SUCROSE
     Dates: start: 20220718, end: 20220718
  9. IRON SUCROSE [Concomitant]
     Active Substance: IRON SUCROSE
     Dates: start: 20220718, end: 20220718
  10. IRON SUCROSE [Concomitant]
     Active Substance: IRON SUCROSE
     Dates: start: 20220719, end: 20220719
  11. IRON SUCROSE [Concomitant]
     Active Substance: IRON SUCROSE
     Dates: start: 20220420, end: 20220420
  12. IRON SUCROSE [Concomitant]
     Active Substance: IRON SUCROSE
     Dates: start: 20220315, end: 20220315
  13. IRON SUCROSE [Concomitant]
     Active Substance: IRON SUCROSE
     Dates: start: 20220322, end: 20220322
  14. IRON SUCROSE [Concomitant]
     Active Substance: IRON SUCROSE
     Dates: start: 20220624, end: 20220624
  15. IRON SUCROSE [Concomitant]
     Active Substance: IRON SUCROSE
     Dates: start: 20220129, end: 20220129

REACTIONS (1)
  - Adverse drug reaction [None]

NARRATIVE: CASE EVENT DATE: 20220714
